FAERS Safety Report 5955263-8 (Version None)
Quarter: 2008Q4

REPORT INFORMATION
  Report Type: 
  Country: None (occurrence: None)
  Receive Date: 20081112
  Receipt Date: 20081029
  Transmission Date: 20090506
  Serious: Yes (Other)
  Sender: FDA-Public Use
  Company Number: STI-2008-03369

PATIENT

DRUGS (1)
  1. ERYTHROMYCIN [Suspect]

REACTIONS (1)
  - JAUNDICE CHOLESTATIC [None]
